FAERS Safety Report 21202243 (Version 1)
Quarter: 2022Q3

REPORT INFORMATION
  Report Type: Spontaneous
  Country: US (occurrence: None)
  Receive Date: 20220811
  Receipt Date: 20220811
  Transmission Date: 20221027
  Serious: Yes (Hospitalization)
  Sender: FDA-Public Use
  Company Number: None

PATIENT
  Age: 64 Year
  Sex: Female
  Weight: 55.8 kg

DRUGS (4)
  1. .DELTA.8-TETRAHYDROCANNABINOL\HERBALS [Suspect]
     Active Substance: .DELTA.8-TETRAHYDROCANNABINOL\HERBALS
     Indication: Sleep disorder
     Dosage: FREQUENCY : AT BEDTIME;?
     Route: 048
     Dates: start: 20220512, end: 20220607
  2. CALCIUM [Concomitant]
     Active Substance: CALCIUM
  3. VITAMIN E [Concomitant]
     Active Substance: .ALPHA.-TOCOPHEROL
  4. METOPROLOL [Concomitant]
     Active Substance: METOPROLOL

REACTIONS (4)
  - Dry mouth [None]
  - Anxiety [None]
  - Tremor [None]
  - Hypertension [None]

NARRATIVE: CASE EVENT DATE: 20220607
